FAERS Safety Report 5497272-1 (Version None)
Quarter: 2007Q4

REPORT INFORMATION
  Report Type: 
  Country: None (occurrence: None)
  Receive Date: 20071025
  Receipt Date: 20071017
  Transmission Date: 20080405
  Serious: Yes (Other)
  Sender: FDA-Public Use
  Company Number: DE-ROCHE-525913

PATIENT
  Sex: Male

DRUGS (2)
  1. XELODA [Suspect]
     Route: 065
  2. AVASTIN [Suspect]
     Route: 065

REACTIONS (1)
  - HAEMOLYTIC ANAEMIA [None]
